APPROVED DRUG PRODUCT: ERYTHROMYCIN
Active Ingredient: ERYTHROMYCIN
Strength: 333MG
Dosage Form/Route: TABLET, DELAYED RELEASE;ORAL
Application: A210954 | Product #002 | TE Code: AB
Applicant: AMNEAL PHARMACEUTICALS CO GMBH
Approved: Jul 2, 2019 | RLD: No | RS: No | Type: RX